FAERS Safety Report 16834771 (Version 1)
Quarter: 2019Q3

REPORT INFORMATION
  Report Type: Spontaneous
  Country: CN (occurrence: CN)
  Receive Date: 20190920
  Receipt Date: 20190920
  Transmission Date: 20191005
  Serious: Yes (Other)
  Sender: FDA-Public Use
  Company Number: CN-JNJFOC-20190924845

PATIENT
  Age: 12 Year
  Sex: Female
  Weight: 54 kg

DRUGS (4)
  1. SUFEN [Concomitant]
     Indication: PAIN
     Dosage: 10 MCG, UNK
     Route: 042
     Dates: start: 20190801, end: 20190801
  2. RAMOSETRON [Concomitant]
     Active Substance: RAMOSETRON HYDROCHLORIDE
     Indication: PAIN
     Dosage: 0.3 MG, UNK
     Route: 042
     Dates: start: 20190801, end: 20190801
  3. TRAMADOL HYDROCHLORIDE. [Suspect]
     Active Substance: TRAMADOL HYDROCHLORIDE
     Indication: PAIN
     Dosage: 200 MG, UNK
     Route: 042
     Dates: start: 20190801, end: 20190801
  4. NALBUPHINE HYDROCHLORIDE. [Concomitant]
     Active Substance: NALBUPHINE HYDROCHLORIDE
     Indication: PAIN
     Dosage: 10 MG, UNK
     Route: 042
     Dates: start: 20190801, end: 20190801

REACTIONS (4)
  - Loss of consciousness [Recovered/Resolved]
  - Speech disorder [Recovered/Resolved]
  - Drooling [Recovered/Resolved]
  - Convulsions local [Recovered/Resolved]

NARRATIVE: CASE EVENT DATE: 20190801
